FAERS Safety Report 24451090 (Version 1)
Quarter: 2024Q4

REPORT INFORMATION
  Report Type: Spontaneous
  Country: GB (occurrence: GB)
  Receive Date: 20241017
  Receipt Date: 20241017
  Transmission Date: 20250115
  Serious: Yes (Other)
  Sender: VERTEX
  Company Number: None

PATIENT
  Age: 7 Year
  Sex: Female
  Weight: 22 kg

DRUGS (8)
  1. ELEXACAFTOR\IVACAFTOR\TEZACAFTOR [Suspect]
     Active Substance: ELEXACAFTOR\IVACAFTOR\TEZACAFTOR
     Indication: Cystic fibrosis
     Dosage: 2 X 37.5MG/25MG/50MG TABLETS EVERY MORNING
     Route: 048
     Dates: start: 20231023
  2. ELEXACAFTOR\IVACAFTOR\TEZACAFTOR [Suspect]
     Active Substance: ELEXACAFTOR\IVACAFTOR\TEZACAFTOR
     Dosage: 2 X 37.5MG/25MG/50MG TABLETS EVERY EVENING
     Route: 048
     Dates: start: 202407
  3. ELEXACAFTOR\IVACAFTOR\TEZACAFTOR [Suspect]
     Active Substance: ELEXACAFTOR\IVACAFTOR\TEZACAFTOR
     Dosage: REDUCED DOSE TO 1 TABLET EVERYDAY
     Route: 048
     Dates: start: 202409
  4. KALYDECO [Suspect]
     Active Substance: IVACAFTOR
     Indication: Cystic fibrosis
     Dosage: 75MG EVERY EVENING
     Route: 048
     Dates: start: 20231010
  5. KALYDECO [Suspect]
     Active Substance: IVACAFTOR
     Dosage: 75MG EVERY MORNING
     Route: 048
     Dates: start: 202407
  6. ACETYLCYSTEINE [Concomitant]
     Active Substance: ACETYLCYSTEINE
     Dosage: UNK
  7. LANSOPRAZOLE [Concomitant]
     Active Substance: LANSOPRAZOLE
     Dosage: UNK
  8. CREON [Concomitant]
     Active Substance: PANCRELIPASE AMYLASE\PANCRELIPASE LIPASE\PANCRELIPASE PROTEASE
     Dosage: UNK

REACTIONS (3)
  - Psychomotor hyperactivity [Not Recovered/Not Resolved]
  - Emotional disorder [Not Recovered/Not Resolved]
  - Sleep disorder [Not Recovered/Not Resolved]
